FAERS Safety Report 6268759-9 (Version None)
Quarter: 2009Q3

REPORT INFORMATION
  Report Type: 
  Country: None (occurrence: None)
  Receive Date: 20090713
  Receipt Date: 20090713
  Transmission Date: 20100115
  Serious: Yes (Hospitalization)
  Sender: FDA-Public Use
  Company Number: None

PATIENT
  Sex: Male
  Weight: 12.1 kg

DRUGS (13)
  1. MYOZYME 250MG/100ML X 1 Q OTHER WEEK IV [Suspect]
     Indication: GLYCOGEN STORAGE DISEASE TYPE II
     Dosage: MYOZYME 250MG/100ML X 1 Q OTHER WEEK IV
     Route: 042
     Dates: start: 20090126
  2. CROMOLYN ORAL SOLUTION [Concomitant]
  3. ZYRTEC [Concomitant]
  4. RANITIDINE [Concomitant]
  5. OMEPRAZOLE [Concomitant]
  6. GLYCOPYRROLATE [Concomitant]
  7. DIPHENHYDRAMINE HCL [Concomitant]
  8. LACTOBACILLUS ACIDOPHILLUS [Suspect]
  9. LEVALBUTEROL HCL [Concomitant]
  10. SODIUM CHLORIDE 3% [Concomitant]
  11. BUDESONIDE [Concomitant]
  12. TOBRAMYCIN [Concomitant]
  13. HEPARIN FLUSH PICC WHEN INFUSION COMPLETE [Concomitant]

REACTIONS (4)
  - BLOOD PRESSURE DIASTOLIC DECREASED [None]
  - HEART RATE INCREASED [None]
  - PYREXIA [None]
  - RESPIRATORY RATE INCREASED [None]
